FAERS Safety Report 10307684 (Version 1)
Quarter: 2014Q3

REPORT INFORMATION
  Report Type: Spontaneous
  Country: US (occurrence: US)
  Receive Date: 20140716
  Receipt Date: 20140716
  Transmission Date: 20150326
  Serious: No
  Sender: FDA-Public Use
  Company Number: US-GLAXOSMITHKLINE-A1073154A

PATIENT
  Age: 78 Year
  Sex: Female

DRUGS (7)
  1. UNSPECIFIED MEDICATION [Concomitant]
     Active Substance: UNSPECIFIED INGREDIENT
     Indication: TREMOR
     Route: 048
  2. OXYGEN. [Concomitant]
     Active Substance: OXYGEN
  3. HEART MEDICATION [Concomitant]
     Active Substance: UNSPECIFIED INGREDIENT
  4. CO Q10 ENZYME [Concomitant]
  5. SYNTHROID [Concomitant]
     Active Substance: LEVOTHYROXINE SODIUM
  6. ANORO ELLIPTA [Suspect]
     Active Substance: UMECLIDINIUM BROMIDE\VILANTEROL TRIFENATATE
     Indication: PULMONARY FIBROSIS
     Dosage: 1PUFF PER DAY
     Route: 055
     Dates: start: 20140512
  7. UNKNOWN DRUG FOR ANXIETY [Concomitant]
     Active Substance: UNSPECIFIED INGREDIENT
     Indication: ANXIETY

REACTIONS (2)
  - Dysgeusia [Recovered/Resolved]
  - Oropharyngeal plaque [Recovered/Resolved]

NARRATIVE: CASE EVENT DATE: 20140512
